FAERS Safety Report 19082721 (Version 8)
Quarter: 2025Q3

REPORT INFORMATION
  Report Type: Spontaneous
  Country: CA (occurrence: CA)
  Receive Date: 20210401
  Receipt Date: 20250812
  Transmission Date: 20251020
  Serious: Yes (Hospitalization, Other)
  Sender: BAUSCH AND LOMB
  Company Number: CA-BAUSCH-BL-2021-010469

PATIENT
  Age: 63 Year
  Sex: Male

DRUGS (249)
  1. ALBUTEROL SULFATE [Suspect]
     Active Substance: ALBUTEROL SULFATE
     Indication: Product used for unknown indication
     Dosage: METERED-DOSE (AEROSOL)
     Route: 055
  2. ALBUTEROL SULFATE [Suspect]
     Active Substance: ALBUTEROL SULFATE
     Dosage: METERED-DOSE (AEROSOL)
     Route: 065
  3. ALBUTEROL SULFATE [Suspect]
     Active Substance: ALBUTEROL SULFATE
     Route: 065
  4. ALBUTEROL SULFATE [Suspect]
     Active Substance: ALBUTEROL SULFATE
     Dosage: METERED-DOSE (AEROSOL)
     Route: 065
  5. ALBUTEROL SULFATE [Suspect]
     Active Substance: ALBUTEROL SULFATE
     Route: 065
  6. ALBUTEROL SULFATE [Suspect]
     Active Substance: ALBUTEROL SULFATE
     Route: 065
  7. ALBUTEROL SULFATE [Suspect]
     Active Substance: ALBUTEROL SULFATE
     Dosage: AEROSOL
     Route: 065
  8. ALBUTEROL SULFATE [Suspect]
     Active Substance: ALBUTEROL SULFATE
     Dosage: AEROSOL
     Route: 065
  9. ALBUTEROL SULFATE [Suspect]
     Active Substance: ALBUTEROL SULFATE
     Indication: Product used for unknown indication
     Route: 055
  10. ALBUTEROL SULFATE [Suspect]
     Active Substance: ALBUTEROL SULFATE
     Route: 065
  11. ALBUTEROL SULFATE [Suspect]
     Active Substance: ALBUTEROL SULFATE
     Route: 055
  12. ALBUTEROL SULFATE [Suspect]
     Active Substance: ALBUTEROL SULFATE
     Route: 065
  13. ALBUTEROL SULFATE [Suspect]
     Active Substance: ALBUTEROL SULFATE
     Route: 065
  14. ALBUTEROL SULFATE [Suspect]
     Active Substance: ALBUTEROL SULFATE
     Route: 055
  15. ALBUTEROL SULFATE [Suspect]
     Active Substance: ALBUTEROL SULFATE
     Dosage: SALBUTAMOL
     Route: 065
  16. ALBUTEROL SULFATE [Suspect]
     Active Substance: ALBUTEROL SULFATE
     Dosage: 4 ADMINISTRATIONS
     Route: 065
  17. DICLOFENAC POTASSIUM [Suspect]
     Active Substance: DICLOFENAC POTASSIUM
     Indication: Product used for unknown indication
     Route: 065
  18. TRAMADOL [Suspect]
     Active Substance: TRAMADOL
     Indication: Product used for unknown indication
     Route: 048
  19. AMLODIPINE MESYLATE [Suspect]
     Active Substance: AMLODIPINE MESYLATE
     Indication: Product used for unknown indication
     Route: 065
  20. AMLODIPINE MESYLATE [Suspect]
     Active Substance: AMLODIPINE MESYLATE
     Route: 065
  21. AMLODIPINE MESYLATE [Suspect]
     Active Substance: AMLODIPINE MESYLATE
     Route: 065
  22. BISOPROLOL [Suspect]
     Active Substance: BISOPROLOL
     Indication: Product used for unknown indication
     Dosage: APO-BISOPROLOL
     Route: 065
  23. BISOPROLOL [Suspect]
     Active Substance: BISOPROLOL
     Route: 065
  24. BISOPROLOL [Suspect]
     Active Substance: BISOPROLOL
     Route: 065
  25. BISOPROLOL [Suspect]
     Active Substance: BISOPROLOL
     Route: 065
  26. PREDNISONE [Suspect]
     Active Substance: PREDNISONE
     Indication: Product used for unknown indication
     Route: 065
  27. PREDNISONE [Suspect]
     Active Substance: PREDNISONE
     Dosage: 3 TIMES ADMINISTERED
     Route: 065
  28. PREDNISONE [Suspect]
     Active Substance: PREDNISONE
     Route: 065
  29. PREDNISONE [Suspect]
     Active Substance: PREDNISONE
     Dosage: 4TIMES ADMINISTERED
     Route: 048
  30. PREDNISONE [Suspect]
     Active Substance: PREDNISONE
     Dosage: 4 TIMES ADMINISTERED
     Route: 065
  31. PREDNISONE [Suspect]
     Active Substance: PREDNISONE
     Route: 048
  32. PREDNISONE [Suspect]
     Active Substance: PREDNISONE
     Route: 048
  33. PREDNISONE [Suspect]
     Active Substance: PREDNISONE
     Route: 065
  34. PREDNISONE [Suspect]
     Active Substance: PREDNISONE
     Route: 065
  35. PREDNISONE [Suspect]
     Active Substance: PREDNISONE
     Route: 065
  36. PREDNISONE [Suspect]
     Active Substance: PREDNISONE
     Route: 065
  37. PREDNISONE [Suspect]
     Active Substance: PREDNISONE
     Route: 065
  38. PREDNISONE [Suspect]
     Active Substance: PREDNISONE
     Route: 065
  39. PREDNISONE [Suspect]
     Active Substance: PREDNISONE
     Route: 065
  40. PREDNISONE [Suspect]
     Active Substance: PREDNISONE
     Route: 065
  41. PREDNISONE [Suspect]
     Active Substance: PREDNISONE
     Route: 065
  42. PREDNISONE [Suspect]
     Active Substance: PREDNISONE
     Dosage: 4 ADMINISTRATIONS
     Route: 065
  43. PREDNISONE [Suspect]
     Active Substance: PREDNISONE
     Route: 065
  44. PREDNISONE [Suspect]
     Active Substance: PREDNISONE
     Route: 065
  45. PREDNISONE [Suspect]
     Active Substance: PREDNISONE
     Route: 065
  46. PREDNISONE [Suspect]
     Active Substance: PREDNISONE
     Dosage: 3 ADMINISTRATIONS
     Route: 048
  47. PREDNISONE [Suspect]
     Active Substance: PREDNISONE
     Route: 065
  48. ACETAMINOPHEN\TRAMADOL HYDROCHLORIDE [Suspect]
     Active Substance: ACETAMINOPHEN\TRAMADOL HYDROCHLORIDE
     Indication: Product used for unknown indication
     Route: 048
  49. ACETAMINOPHEN\TRAMADOL HYDROCHLORIDE [Suspect]
     Active Substance: ACETAMINOPHEN\TRAMADOL HYDROCHLORIDE
     Route: 048
  50. ATROVENT HFA [Suspect]
     Active Substance: IPRATROPIUM BROMIDE
     Indication: Product used for unknown indication
     Dosage: METERED-DOSE (AEROSOL)
  51. ATROVENT HFA [Suspect]
     Active Substance: IPRATROPIUM BROMIDE
  52. ATROVENT HFA [Suspect]
     Active Substance: IPRATROPIUM BROMIDE
     Route: 065
  53. ATROVENT HFA [Suspect]
     Active Substance: IPRATROPIUM BROMIDE
     Dosage: METERED-DOSE (AEROSOL)
     Route: 065
  54. AZITHROMYCIN ANHYDROUS [Suspect]
     Active Substance: AZITHROMYCIN ANHYDROUS
     Indication: Product used for unknown indication
     Route: 065
  55. AZITHROMYCIN ANHYDROUS [Suspect]
     Active Substance: AZITHROMYCIN ANHYDROUS
     Route: 065
  56. AZITHROMYCIN ANHYDROUS [Suspect]
     Active Substance: AZITHROMYCIN ANHYDROUS
     Dosage: AZITHROMYCIN MONOHYDRATE
     Route: 065
  57. INDAPAMIDE\PERINDOPRIL ERBUMINE [Suspect]
     Active Substance: INDAPAMIDE\PERINDOPRIL ERBUMINE
     Indication: Product used for unknown indication
     Dosage: 6 TIMES ADMINISTERED
     Route: 065
  58. INDAPAMIDE\PERINDOPRIL ERBUMINE [Suspect]
     Active Substance: INDAPAMIDE\PERINDOPRIL ERBUMINE
     Route: 065
  59. INDAPAMIDE\PERINDOPRIL ERBUMINE [Suspect]
     Active Substance: INDAPAMIDE\PERINDOPRIL ERBUMINE
     Route: 065
  60. DOXYCYCLINE HYCLATE [Suspect]
     Active Substance: DOXYCYCLINE HYCLATE
     Indication: Product used for unknown indication
     Dosage: DOXYCYCLINE
     Route: 065
  61. DOXYCYCLINE HYCLATE [Suspect]
     Active Substance: DOXYCYCLINE HYCLATE
     Dosage: DOXYCYCLINE (ADMINISTERED 2 TIMES)
     Route: 048
  62. DOXYCYCLINE HYCLATE [Suspect]
     Active Substance: DOXYCYCLINE HYCLATE
     Route: 065
  63. DOXYCYCLINE HYCLATE [Suspect]
     Active Substance: DOXYCYCLINE HYCLATE
     Route: 065
  64. DOXYCYCLINE HYCLATE [Suspect]
     Active Substance: DOXYCYCLINE HYCLATE
     Route: 048
  65. DOXYCYCLINE HYCLATE [Suspect]
     Active Substance: DOXYCYCLINE HYCLATE
     Route: 065
  66. DOXYCYCLINE HYCLATE [Suspect]
     Active Substance: DOXYCYCLINE HYCLATE
     Dosage: DOXYCYCLINE
     Route: 065
  67. DOXYCYCLINE HYCLATE [Suspect]
     Active Substance: DOXYCYCLINE HYCLATE
     Route: 065
  68. DOXYCYCLINE HYCLATE [Suspect]
     Active Substance: DOXYCYCLINE HYCLATE
     Route: 065
  69. DOXYCYCLINE HYCLATE [Suspect]
     Active Substance: DOXYCYCLINE HYCLATE
     Dosage: 2 ADMINISTRATIONS
     Route: 048
  70. DOXYCYCLINE HYCLATE [Suspect]
     Active Substance: DOXYCYCLINE HYCLATE
     Route: 065
  71. DOXYCYCLINE HYCLATE [Suspect]
     Active Substance: DOXYCYCLINE HYCLATE
     Route: 065
  72. DOXYCYCLINE HYCLATE [Suspect]
     Active Substance: DOXYCYCLINE HYCLATE
     Dosage: NOT SPECIFIED
     Route: 048
  73. CYCLOBENZAPRINE [Suspect]
     Active Substance: CYCLOBENZAPRINE
     Indication: Product used for unknown indication
     Route: 048
  74. CYCLOBENZAPRINE [Suspect]
     Active Substance: CYCLOBENZAPRINE
     Route: 065
  75. CYCLOBENZAPRINE [Suspect]
     Active Substance: CYCLOBENZAPRINE
     Dosage: NOT SPECIFIED
     Route: 065
  76. CYCLOBENZAPRINE [Suspect]
     Active Substance: CYCLOBENZAPRINE
     Dosage: 2 ADMINISTRATIONS
     Route: 065
  77. CYCLOBENZAPRINE [Suspect]
     Active Substance: CYCLOBENZAPRINE
     Route: 065
  78. FLUTICASONE PROPIONATE\SALMETEROL XINAFOATE [Suspect]
     Active Substance: FLUTICASONE PROPIONATE\SALMETEROL XINAFOATE
     Indication: Product used for unknown indication
     Dosage: FLUTICASONE PROPIONATE;SALMETEROL XINAFOATE
     Route: 055
  79. FLUTICASONE PROPIONATE\SALMETEROL XINAFOATE [Suspect]
     Active Substance: FLUTICASONE PROPIONATE\SALMETEROL XINAFOATE
     Dosage: FLUTICASONE PROPIONATE;SALMETEROL XINAFOATE
     Route: 055
  80. FLUTICASONE PROPIONATE\SALMETEROL XINAFOATE [Suspect]
     Active Substance: FLUTICASONE PROPIONATE\SALMETEROL XINAFOATE
     Route: 055
  81. FLUTICASONE PROPIONATE\SALMETEROL XINAFOATE [Suspect]
     Active Substance: FLUTICASONE PROPIONATE\SALMETEROL XINAFOATE
     Dosage: NOT SPECIFIED, ?FLUTICASONE PROPIONATE;SALMETEROL XINAFOATE
     Route: 065
  82. FORMOTEROL\MOMETASONE [Suspect]
     Active Substance: FORMOTEROL\MOMETASONE
     Indication: Product used for unknown indication
     Route: 055
  83. FORMOTEROL\MOMETASONE [Suspect]
     Active Substance: FORMOTEROL\MOMETASONE
     Dosage: FORMOTEROL FUMARATE;MOMETASONE FUROATE
     Route: 065
  84. FORMOTEROL\MOMETASONE [Suspect]
     Active Substance: FORMOTEROL\MOMETASONE
     Route: 065
  85. FORMOTEROL\MOMETASONE [Suspect]
     Active Substance: FORMOTEROL\MOMETASONE
     Route: 055
  86. FUROSEMIDE [Suspect]
     Active Substance: FUROSEMIDE
     Indication: Product used for unknown indication
     Route: 065
  87. FUROSEMIDE [Suspect]
     Active Substance: FUROSEMIDE
     Dosage: 2 ADMINISTRATIONS
     Route: 065
  88. FUROSEMIDE [Suspect]
     Active Substance: FUROSEMIDE
     Route: 065
  89. FUROSEMIDE [Suspect]
     Active Substance: FUROSEMIDE
     Route: 065
  90. FUROSEMIDE [Suspect]
     Active Substance: FUROSEMIDE
     Dosage: 3 ADMINISTRATION
     Route: 048
  91. FUROSEMIDE [Suspect]
     Active Substance: FUROSEMIDE
     Route: 065
  92. FUROSEMIDE [Suspect]
     Active Substance: FUROSEMIDE
     Route: 065
  93. FUROSEMIDE [Suspect]
     Active Substance: FUROSEMIDE
     Route: 065
  94. FUROSEMIDE [Suspect]
     Active Substance: FUROSEMIDE
     Route: 065
  95. FUROSEMIDE [Suspect]
     Active Substance: FUROSEMIDE
     Route: 065
  96. FUROSEMIDE [Suspect]
     Active Substance: FUROSEMIDE
     Route: 065
  97. FUROSEMIDE [Suspect]
     Active Substance: FUROSEMIDE
     Route: 065
  98. FUROSEMIDE [Suspect]
     Active Substance: FUROSEMIDE
     Dosage: 2 ADMINISTRATIONS
     Route: 065
  99. FUROSEMIDE [Suspect]
     Active Substance: FUROSEMIDE
     Dosage: NOT SPECIFIED
     Route: 065
  100. FUROSEMIDE [Suspect]
     Active Substance: FUROSEMIDE
     Route: 065
  101. INSPRA [Suspect]
     Active Substance: EPLERENONE
     Indication: Product used for unknown indication
     Dosage: 2 TIMES ADMINISTERED
     Route: 065
  102. INSPRA [Suspect]
     Active Substance: EPLERENONE
     Route: 048
  103. INSPRA [Suspect]
     Active Substance: EPLERENONE
     Route: 048
  104. INSPRA [Suspect]
     Active Substance: EPLERENONE
     Route: 048
  105. INSPRA [Suspect]
     Active Substance: EPLERENONE
     Route: 048
  106. INSPRA [Suspect]
     Active Substance: EPLERENONE
     Route: 065
  107. INSPRA [Suspect]
     Active Substance: EPLERENONE
     Route: 048
  108. IVABRADINE HYDROCHLORIDE [Suspect]
     Active Substance: IVABRADINE HYDROCHLORIDE
     Indication: Product used for unknown indication
     Route: 048
  109. IVABRADINE HYDROCHLORIDE [Suspect]
     Active Substance: IVABRADINE HYDROCHLORIDE
     Route: 048
  110. IVABRADINE HYDROCHLORIDE [Suspect]
     Active Substance: IVABRADINE HYDROCHLORIDE
     Route: 065
  111. IVABRADINE HYDROCHLORIDE [Suspect]
     Active Substance: IVABRADINE HYDROCHLORIDE
     Route: 048
  112. KETOROLAC TROMETHAMINE [Suspect]
     Active Substance: KETOROLAC TROMETHAMINE
     Indication: Product used for unknown indication
     Route: 048
  113. KETOROLAC TROMETHAMINE [Suspect]
     Active Substance: KETOROLAC TROMETHAMINE
     Route: 048
  114. KETOROLAC TROMETHAMINE [Suspect]
     Active Substance: KETOROLAC TROMETHAMINE
     Dosage: MAR-KETOROLAC
     Route: 048
  115. KETOROLAC TROMETHAMINE [Suspect]
     Active Substance: KETOROLAC TROMETHAMINE
     Route: 048
  116. KETOROLAC TROMETHAMINE [Suspect]
     Active Substance: KETOROLAC TROMETHAMINE
     Route: 048
  117. MEPOLIZUMAB [Suspect]
     Active Substance: MEPOLIZUMAB
     Indication: Asthma
     Route: 042
  118. MEPOLIZUMAB [Suspect]
     Active Substance: MEPOLIZUMAB
     Route: 065
  119. SINGULAIR [Suspect]
     Active Substance: MONTELUKAST SODIUM
     Indication: Product used for unknown indication
     Route: 065
  120. SINGULAIR [Suspect]
     Active Substance: MONTELUKAST SODIUM
     Route: 065
  121. SINGULAIR [Suspect]
     Active Substance: MONTELUKAST SODIUM
     Route: 065
  122. SINGULAIR [Suspect]
     Active Substance: MONTELUKAST SODIUM
     Route: 065
  123. SINGULAIR [Suspect]
     Active Substance: MONTELUKAST SODIUM
     Route: 048
  124. SINGULAIR [Suspect]
     Active Substance: MONTELUKAST SODIUM
     Route: 048
  125. SINGULAIR [Suspect]
     Active Substance: MONTELUKAST SODIUM
     Route: 065
  126. SINGULAIR [Suspect]
     Active Substance: MONTELUKAST SODIUM
     Dosage: NOT SPECIFIED
     Route: 065
  127. PERINDOPRIL [Suspect]
     Active Substance: PERINDOPRIL
     Indication: Product used for unknown indication
     Route: 065
  128. PERINDOPRIL [Suspect]
     Active Substance: PERINDOPRIL
     Route: 065
  129. PERINDOPRIL [Suspect]
     Active Substance: PERINDOPRIL
     Route: 065
  130. PERINDOPRIL [Suspect]
     Active Substance: PERINDOPRIL
     Dosage: PERINDOPRIL ERBUMINE
     Route: 065
  131. CARVEDILOL [Suspect]
     Active Substance: CARVEDILOL
     Indication: Product used for unknown indication
     Dosage: PMS-CARVEDILOL
     Route: 065
  132. CARVEDILOL [Suspect]
     Active Substance: CARVEDILOL
     Route: 065
  133. PREGABALIN [Suspect]
     Active Substance: PREGABALIN
     Indication: Product used for unknown indication
     Route: 048
  134. PREGABALIN [Suspect]
     Active Substance: PREGABALIN
     Route: 048
  135. PREGABALIN [Suspect]
     Active Substance: PREGABALIN
     Route: 048
  136. GLYCOPYRROLATE [Suspect]
     Active Substance: GLYCOPYRROLATE
     Indication: Asthma
  137. GLYCOPYRROLATE [Suspect]
     Active Substance: GLYCOPYRROLATE
     Indication: Product used for unknown indication
  138. GLYCOPYRROLATE [Suspect]
     Active Substance: GLYCOPYRROLATE
  139. GLYCOPYRROLATE [Suspect]
     Active Substance: GLYCOPYRROLATE
     Dosage: 2 ADMINISTRATIONS
     Route: 065
  140. GLYCOPYRROLATE [Suspect]
     Active Substance: GLYCOPYRROLATE
     Route: 065
  141. SPIRONOLACTONE [Suspect]
     Active Substance: SPIRONOLACTONE
     Indication: Product used for unknown indication
     Dosage: TEVA-SPIRONOLACTONE
     Route: 065
  142. SPIRONOLACTONE [Suspect]
     Active Substance: SPIRONOLACTONE
     Dosage: SPIRONOLACTONE
     Route: 065
  143. SPIRONOLACTONE [Suspect]
     Active Substance: SPIRONOLACTONE
     Route: 065
  144. SPIRONOLACTONE [Suspect]
     Active Substance: SPIRONOLACTONE
     Route: 065
  145. SACUBITRIL\VALSARTAN [Suspect]
     Active Substance: SACUBITRIL\VALSARTAN
     Indication: Product used for unknown indication
     Dosage: SACUBITRIL VALSARTAN SODIUM HYDRATE
     Route: 048
  146. SACUBITRIL\VALSARTAN [Suspect]
     Active Substance: SACUBITRIL\VALSARTAN
     Route: 048
  147. TIOTROPIUM BROMIDE [Suspect]
     Active Substance: TIOTROPIUM BROMIDE
     Indication: Product used for unknown indication
     Route: 065
  148. TIOTROPIUM BROMIDE [Suspect]
     Active Substance: TIOTROPIUM BROMIDE
     Route: 065
  149. TIOTROPIUM BROMIDE [Suspect]
     Active Substance: TIOTROPIUM BROMIDE
     Dosage: TIOTROPIUM BROMIDE MONOHYDRATE
     Route: 065
  150. TIOTROPIUM BROMIDE [Suspect]
     Active Substance: TIOTROPIUM BROMIDE
     Dosage: TIOTROPIUM BROMIDE MONOHYDRATE
     Route: 065
  151. UMECLIDINIUM BROMIDE [Suspect]
     Active Substance: UMECLIDINIUM BROMIDE
     Indication: Product used for unknown indication
     Route: 065
  152. UMECLIDINIUM BROMIDE [Suspect]
     Active Substance: UMECLIDINIUM BROMIDE
     Route: 065
  153. UMECLIDINIUM BROMIDE [Suspect]
     Active Substance: UMECLIDINIUM BROMIDE
     Dosage: 2 ADMINISTRATIONS
     Route: 065
  154. VARENICLINE TARTRATE [Suspect]
     Active Substance: VARENICLINE TARTRATE
     Indication: Product used for unknown indication
     Route: 065
  155. VARENICLINE TARTRATE [Suspect]
     Active Substance: VARENICLINE TARTRATE
     Route: 065
  156. VENTOLIN HFA [Suspect]
     Active Substance: ALBUTEROL SULFATE
     Indication: Product used for unknown indication
     Route: 065
  157. VENTOLIN HFA [Suspect]
     Active Substance: ALBUTEROL SULFATE
     Route: 065
  158. VENTOLIN HFA [Suspect]
     Active Substance: ALBUTEROL SULFATE
     Route: 065
  159. VENTOLIN HFA [Suspect]
     Active Substance: ALBUTEROL SULFATE
     Route: 065
  160. ZENHALE [Suspect]
     Active Substance: FORMOTEROL FUMARATE\MOMETASONE FUROATE
     Indication: Product used for unknown indication
     Dosage: AEROSOL, METERED DOSE
     Route: 055
  161. ZENHALE [Suspect]
     Active Substance: FORMOTEROL FUMARATE\MOMETASONE FUROATE
     Route: 065
  162. ZENHALE [Suspect]
     Active Substance: FORMOTEROL FUMARATE\MOMETASONE FUROATE
     Route: 065
  163. ACETAMINOPHEN\BUTALBITAL [Suspect]
     Active Substance: ACETAMINOPHEN\BUTALBITAL
     Indication: Product used for unknown indication
     Route: 048
  164. ACETAMINOPHEN\BUTALBITAL [Suspect]
     Active Substance: ACETAMINOPHEN\BUTALBITAL
     Route: 048
  165. AMLODIPINE BESYLATE [Suspect]
     Active Substance: AMLODIPINE BESYLATE
     Indication: Product used for unknown indication
     Route: 065
  166. AMLODIPINE BESYLATE [Suspect]
     Active Substance: AMLODIPINE BESYLATE
     Route: 065
  167. AMLODIPINE BESYLATE [Suspect]
     Active Substance: AMLODIPINE BESYLATE
     Route: 065
  168. AMLODIPINE BESYLATE [Suspect]
     Active Substance: AMLODIPINE BESYLATE
     Route: 065
  169. AMLODIPINE BESYLATE [Suspect]
     Active Substance: AMLODIPINE BESYLATE
     Dosage: NOT SPECIFIED
     Route: 065
  170. CICLESONIDE [Suspect]
     Active Substance: CICLESONIDE
     Indication: Product used for unknown indication
     Route: 065
  171. CICLESONIDE [Suspect]
     Active Substance: CICLESONIDE
     Route: 065
  172. CYCLOBENZAPRINE HYDROCHLORIDE\DICLOFENAC POTASSIUM [Suspect]
     Active Substance: CYCLOBENZAPRINE HYDROCHLORIDE\DICLOFENAC POTASSIUM
     Indication: Product used for unknown indication
     Route: 065
  173. CYCLOBENZAPRINE HYDROCHLORIDE\DICLOFENAC POTASSIUM [Suspect]
     Active Substance: CYCLOBENZAPRINE HYDROCHLORIDE\DICLOFENAC POTASSIUM
     Route: 065
  174. FLUTICASONE\FORMOTEROL [Suspect]
     Active Substance: FLUTICASONE\FORMOTEROL
     Indication: Product used for unknown indication
     Route: 065
  175. FLUTICASONE\FORMOTEROL [Suspect]
     Active Substance: FLUTICASONE\FORMOTEROL
     Route: 065
  176. FUROSEMIDE\POTASSIUM CHLORIDE [Suspect]
     Active Substance: FUROSEMIDE\POTASSIUM CHLORIDE
     Indication: Product used for unknown indication
     Route: 065
  177. FUROSEMIDE\POTASSIUM CHLORIDE [Suspect]
     Active Substance: FUROSEMIDE\POTASSIUM CHLORIDE
     Route: 065
  178. INDAPAMIDE\PERINDOPRIL [Suspect]
     Active Substance: INDAPAMIDE\PERINDOPRIL
     Indication: Product used for unknown indication
     Route: 065
  179. INDAPAMIDE\PERINDOPRIL [Suspect]
     Active Substance: INDAPAMIDE\PERINDOPRIL
     Route: 065
  180. KETOROLAC [Suspect]
     Active Substance: KETOROLAC TROMETHAMINE
     Indication: Product used for unknown indication
     Route: 048
  181. KETOROLAC [Suspect]
     Active Substance: KETOROLAC TROMETHAMINE
     Route: 048
  182. KETOROLAC [Suspect]
     Active Substance: KETOROLAC TROMETHAMINE
     Dosage: MAR-KETOROLAC
     Route: 048
  183. KETOROLAC [Suspect]
     Active Substance: KETOROLAC TROMETHAMINE
     Dosage: NOT SPECIFIED
     Route: 048
  184. SPIRIVA [Suspect]
     Active Substance: TIOTROPIUM BROMIDE MONOHYDRATE
     Indication: Product used for unknown indication
     Dosage: NOT SPECIFIED
     Route: 065
  185. UMECLIDINIUM BROMIDE\VILANTEROL TRIFENATATE [Suspect]
     Active Substance: UMECLIDINIUM BROMIDE\VILANTEROL TRIFENATATE
     Indication: Product used for unknown indication
     Route: 065
  186. IPRATROPIUM BROMIDE [Suspect]
     Active Substance: IPRATROPIUM BROMIDE
     Indication: Product used for unknown indication
     Route: 065
  187. INDAPAMIDE\PERINDOPRIL [Suspect]
     Active Substance: INDAPAMIDE\PERINDOPRIL
     Indication: Product used for unknown indication
     Route: 065
  188. INDAPAMIDE\PERINDOPRIL [Suspect]
     Active Substance: INDAPAMIDE\PERINDOPRIL
     Route: 065
  189. MONTELUKAST [Suspect]
     Active Substance: MONTELUKAST
     Indication: Product used for unknown indication
     Route: 048
  190. MONTELUKAST [Suspect]
     Active Substance: MONTELUKAST
     Route: 048
  191. MONTELUKAST [Suspect]
     Active Substance: MONTELUKAST
     Route: 065
  192. MONTELUKAST [Suspect]
     Active Substance: MONTELUKAST
     Route: 048
  193. MONTELUKAST [Suspect]
     Active Substance: MONTELUKAST
     Route: 048
  194. MONTELUKAST [Suspect]
     Active Substance: MONTELUKAST
     Route: 048
  195. MONTELUKAST [Suspect]
     Active Substance: MONTELUKAST
     Dosage: MONTELUKAST SODIUM, 4 ADMINISTRATION
     Route: 048
  196. MONTELUKAST [Suspect]
     Active Substance: MONTELUKAST
     Dosage: MONTELUKAST SODIUM
     Route: 048
  197. MONTELUKAST [Suspect]
     Active Substance: MONTELUKAST
     Dosage: MONTELUKAST SODIUM
     Route: 065
  198. MONTELUKAST [Suspect]
     Active Substance: MONTELUKAST
     Dosage: MONTELUKAST SODIUM
     Route: 065
  199. MONTELUKAST [Suspect]
     Active Substance: MONTELUKAST
     Dosage: MONTELUKAST SODIUM
     Route: 048
  200. MONTELUKAST [Suspect]
     Active Substance: MONTELUKAST
     Dosage: MONTELUKAST SODIUM
     Route: 065
  201. MONTELUKAST [Suspect]
     Active Substance: MONTELUKAST
     Dosage: MONTELUKAST SODIUM
     Route: 065
  202. MONTELUKAST [Suspect]
     Active Substance: MONTELUKAST
     Dosage: MONTELUKAST SODIUM
     Route: 048
  203. MONTELUKAST [Suspect]
     Active Substance: MONTELUKAST
     Route: 065
  204. MONTELUKAST [Suspect]
     Active Substance: MONTELUKAST
     Dosage: 5 ADMINISTRATIONS, MONTELUKAST SODIUM
     Route: 065
  205. MONTELUKAST [Suspect]
     Active Substance: MONTELUKAST
     Dosage: 4 ADMINISTRATIONS, MONTELUKAST SODIUM
     Route: 048
  206. MONTELUKAST [Suspect]
     Active Substance: MONTELUKAST
     Dosage: 5 ADMINISTRATIONS ,MONTELUKAST SODIUM
     Route: 065
  207. MONTELUKAST [Suspect]
     Active Substance: MONTELUKAST
     Dosage: 3 ADMINISTRATIONS, MONTELUKAST SODIUM
     Route: 048
  208. MONTELUKAST [Suspect]
     Active Substance: MONTELUKAST
     Route: 065
  209. DOXYCYCLINE [Suspect]
     Active Substance: DOXYCYCLINE
     Indication: Product used for unknown indication
     Route: 065
  210. DOXYCYCLINE [Suspect]
     Active Substance: DOXYCYCLINE
     Route: 048
  211. DOXYCYCLINE [Suspect]
     Active Substance: DOXYCYCLINE
     Route: 065
  212. AMLODIPINE BESYLATE [Suspect]
     Active Substance: AMLODIPINE BESYLATE
     Indication: Product used for unknown indication
     Route: 065
  213. TIOTROPIUM BROMIDE MONOHYDRATE [Suspect]
     Active Substance: TIOTROPIUM BROMIDE MONOHYDRATE
     Indication: Product used for unknown indication
     Route: 065
  214. TIOTROPIUM BROMIDE MONOHYDRATE [Suspect]
     Active Substance: TIOTROPIUM BROMIDE MONOHYDRATE
     Route: 065
  215. ENTRESTO [Suspect]
     Active Substance: SACUBITRIL\VALSARTAN
     Indication: Product used for unknown indication
     Route: 048
  216. ENTRESTO [Suspect]
     Active Substance: SACUBITRIL\VALSARTAN
     Dosage: 8 TIMES ADMINISTERED
     Route: 048
  217. ENTRESTO [Suspect]
     Active Substance: SACUBITRIL\VALSARTAN
     Route: 048
  218. ENTRESTO [Suspect]
     Active Substance: SACUBITRIL\VALSARTAN
     Dosage: 9 ADMINISTRATIONS
     Route: 048
  219. PERINDOPRIL [Suspect]
     Active Substance: PERINDOPRIL
     Indication: Product used for unknown indication
     Route: 065
  220. PERINDOPRIL [Suspect]
     Active Substance: PERINDOPRIL
     Route: 065
  221. ADVAIR HFA [Suspect]
     Active Substance: FLUTICASONE PROPIONATE\SALMETEROL XINAFOATE
     Indication: Product used for unknown indication
     Route: 055
  222. PERINDOPRIL ARGININE [Suspect]
     Active Substance: PERINDOPRIL ARGININE
     Indication: Product used for unknown indication
     Dosage: TABLET (ORALLY DISINTEGRATING)
     Route: 065
  223. PERINDOPRIL ARGININE [Suspect]
     Active Substance: PERINDOPRIL ARGININE
     Dosage: TABLET (ORALLY DISINTEGRATING)
     Route: 065
  224. PERINDOPRIL ARGININE [Suspect]
     Active Substance: PERINDOPRIL ARGININE
     Dosage: TABLET (ORALLY DISINTEGRATING)
     Route: 065
  225. BISOPROLOL FUMARATE [Suspect]
     Active Substance: BISOPROLOL FUMARATE
     Indication: Product used for unknown indication
     Route: 065
  226. BISOPROLOL FUMARATE [Suspect]
     Active Substance: BISOPROLOL FUMARATE
     Route: 065
  227. BISOPROLOL FUMARATE [Suspect]
     Active Substance: BISOPROLOL FUMARATE
     Route: 065
  228. ALVESCO [Suspect]
     Active Substance: CICLESONIDE
     Indication: Product used for unknown indication
     Dosage: 2 ADMINISTRATION
     Route: 065
  229. ALVESCO [Suspect]
     Active Substance: CICLESONIDE
     Dosage: AEROSOL, METERED DOSE
     Route: 065
  230. FORMOTEROL [Suspect]
     Active Substance: FORMOTEROL
     Indication: Product used for unknown indication
     Route: 055
  231. FORMOTEROL [Suspect]
     Active Substance: FORMOTEROL
     Route: 065
  232. FORMOTEROL [Suspect]
     Active Substance: FORMOTEROL
     Route: 055
  233. FORMOTEROL [Suspect]
     Active Substance: FORMOTEROL
     Route: 065
  234. FORMOTEROL [Suspect]
     Active Substance: FORMOTEROL
     Route: 065
  235. FORMOTEROL [Suspect]
     Active Substance: FORMOTEROL
     Route: 065
  236. FORMOTEROL [Suspect]
     Active Substance: FORMOTEROL
     Route: 065
  237. BREO ELLIPTA [Suspect]
     Active Substance: FLUTICASONE FUROATE\VILANTEROL TRIFENATATE
     Indication: Product used for unknown indication
     Dosage: INHALATION (ADMINISTERED 3 TIMES)
     Route: 065
  238. BREO ELLIPTA [Suspect]
     Active Substance: FLUTICASONE FUROATE\VILANTEROL TRIFENATATE
     Dosage: INHALATION
     Route: 065
  239. BREO ELLIPTA [Suspect]
     Active Substance: FLUTICASONE FUROATE\VILANTEROL TRIFENATATE
     Dosage: INHALATION
     Route: 065
  240. BREO ELLIPTA [Suspect]
     Active Substance: FLUTICASONE FUROATE\VILANTEROL TRIFENATATE
     Dosage: 3 ADMINISTRATIONS
     Route: 065
  241. ACEBUTOLOL HYDROCHLORIDE [Suspect]
     Active Substance: ACEBUTOLOL HYDROCHLORIDE
     Indication: Product used for unknown indication
     Route: 065
  242. ALTHIAZIDE [Suspect]
     Active Substance: ALTHIAZIDE
     Indication: Product used for unknown indication
     Route: 065
  243. INDAPAMIDE\PERINDOPRIL [Suspect]
     Active Substance: INDAPAMIDE\PERINDOPRIL
     Indication: Product used for unknown indication
     Dosage: 5 ADMINISTRATIONS
     Route: 065
  244. INDAPAMIDE\PERINDOPRIL [Suspect]
     Active Substance: INDAPAMIDE\PERINDOPRIL
     Route: 065
  245. VILANTEROL TRIFENATATE [Suspect]
     Active Substance: VILANTEROL TRIFENATATE
     Indication: Product used for unknown indication
     Route: 065
  246. RIBOFLAVIN 5^-PHOSPHATE SODIUM [Suspect]
     Active Substance: RIBOFLAVIN 5^-PHOSPHATE SODIUM
     Indication: Product used for unknown indication
     Route: 065
  247. FLUTICASONE PROPIONATE [Suspect]
     Active Substance: FLUTICASONE PROPIONATE
     Indication: Product used for unknown indication
     Route: 065
  248. INFLUENZA VIRUS VACCINE [Concomitant]
     Active Substance: INFLUENZA VIRUS VACCINE
     Indication: Prophylaxis
     Route: 065
  249. INFLUENZA VIRUS VACCINE [Concomitant]
     Active Substance: INFLUENZA VIRUS VACCINE
     Indication: Product used for unknown indication
     Route: 065

REACTIONS (14)
  - Asthma [Unknown]
  - Asthma-chronic obstructive pulmonary disease overlap syndrome [Unknown]
  - Breath sounds abnormal [Unknown]
  - Bronchial hyperreactivity [Unknown]
  - Cardiac disorder [Unknown]
  - Cardiomyopathy [Unknown]
  - Drug intolerance [Unknown]
  - Dyspnoea [Unknown]
  - Eosinophilia [Unknown]
  - Ischaemic cardiomyopathy [Unknown]
  - Obstructive airways disorder [Unknown]
  - Pulmonary function test abnormal [Unknown]
  - Bronchitis [Unknown]
  - Drug ineffective [Unknown]
